FAERS Safety Report 6465383-X (Version None)
Quarter: 2009Q4

REPORT INFORMATION
  Report Type: 
  Country: None (occurrence: None)
  Receive Date: 20091201
  Receipt Date: 20090505
  Transmission Date: 20100525
  Serious: No
  Sender: FDA-Public Use
  Company Number: US-AMGEN-KDL286944

PATIENT
  Sex: Female

DRUGS (15)
  1. ENBREL [Suspect]
     Indication: RHEUMATOID ARTHRITIS
     Route: 058
     Dates: end: 20080516
  2. ARAVA [Concomitant]
  3. PREDNISONE TAB [Concomitant]
  4. NABUMETONE [Concomitant]
  5. METHOTREXATE [Concomitant]
     Route: 048
  6. FOLIC ACID [Concomitant]
  7. HYDROCHLOROTHIAZIDE [Concomitant]
  8. LISINOPRIL [Concomitant]
  9. LOPERAMIDE [Concomitant]
  10. CALCIUM [Concomitant]
  11. LYSINE [Concomitant]
  12. PRILOSEC [Concomitant]
  13. ASCORBIC ACID [Concomitant]
  14. MAGNESIUM [Concomitant]
  15. FISH OIL [Concomitant]

REACTIONS (14)
  - ARTHRALGIA [None]
  - DRUG INEFFECTIVE [None]
  - DRY EYE [None]
  - INJURY [None]
  - MUSCLE SPASMS [None]
  - MUSCULOSKELETAL PAIN [None]
  - NODULE ON EXTREMITY [None]
  - OEDEMA PERIPHERAL [None]
  - PAIN IN EXTREMITY [None]
  - PERIORBITAL HAEMATOMA [None]
  - PLANTAR FASCIITIS [None]
  - RHEUMATOID ARTHRITIS [None]
  - TENDERNESS [None]
  - TENDON PAIN [None]
